FAERS Safety Report 9641099 (Version 1)
Quarter: 2013Q4

REPORT INFORMATION
  Report Type: Report from Study
  Country: US (occurrence: US)
  Receive Date: 20131023
  Receipt Date: 20131023
  Transmission Date: 20140711
  Serious: No
  Sender: FDA-Public Use
  Company Number: US-ABBVIE-13P-163-1133889-00

PATIENT
  Age: 28 Year
  Sex: Female

DRUGS (4)
  1. LUPRON DEPOT [Suspect]
     Indication: ENDOMETRIOSIS
     Dates: start: 2010, end: 201105
  2. LUPRON DEPOT [Suspect]
     Dates: start: 201305
  3. ADVAIR [Concomitant]
     Indication: PRODUCT USED FOR UNKNOWN INDICATION
  4. NORETHINDRONE [Concomitant]

REACTIONS (6)
  - Fluid retention [Unknown]
  - Varicose vein [Unknown]
  - Streptococcal infection [Unknown]
  - Pneumonia [Unknown]
  - Mobility decreased [Unknown]
  - Alcohol intolerance [Unknown]
